FAERS Safety Report 9193009 (Version 4)
Quarter: 2013Q4

REPORT INFORMATION
  Report Type: Report from Study
  Country: HU (occurrence: HU)
  Receive Date: 20130327
  Receipt Date: 20131025
  Transmission Date: 20140711
  Serious: Yes (Death, Hospitalization, Other)
  Sender: FDA-Public Use
  Company Number: HU-ASTRAZENECA-2013SE17955

PATIENT
  Age: 23560 Day
  Sex: Male

DRUGS (12)
  1. AZD6140 [Suspect]
     Indication: CORONARY ARTERY DISEASE
     Route: 048
     Dates: start: 20120127, end: 20130113
  2. AZD6140 [Suspect]
     Indication: CORONARY ARTERY DISEASE
     Route: 048
     Dates: start: 20130117, end: 20130212
  3. ROSUVASTATIN TEVA [Concomitant]
     Indication: HYPERLIPIDAEMIA
     Route: 048
     Dates: end: 20130314
  4. MEFORAL [Concomitant]
     Indication: TYPE 2 DIABETES MELLITUS
     Route: 048
     Dates: end: 20130314
  5. PANTACID FLUX [Concomitant]
     Indication: GASTROINTESTINAL HAEMORRHAGE
     Route: 048
  6. NEBILET [Concomitant]
     Indication: MYOCARDIAL ISCHAEMIA
     Route: 048
  7. ACEPRIL (ENALAPRIL) [Concomitant]
     Indication: HYPERTENSION
     Route: 048
  8. LIPIDIL [Concomitant]
     Indication: HYPERLIPIDAEMIA
     Route: 048
     Dates: end: 20130314
  9. MILURIT [Concomitant]
     Indication: HYPERURICAEMIA
     Route: 048
  10. XELEVIA [Concomitant]
     Indication: TYPE 2 DIABETES MELLITUS
     Route: 048
  11. ASA [Concomitant]
     Route: 048
     Dates: end: 20130212
  12. GLICLADA [Concomitant]
     Indication: TYPE 2 DIABETES MELLITUS
     Route: 048
     Dates: start: 20120324

REACTIONS (2)
  - Oesophageal cancer metastatic [Fatal]
  - Iron deficiency anaemia [Recovered/Resolved]
